FAERS Safety Report 6738588-8 (Version None)
Quarter: 2010Q2

REPORT INFORMATION
  Report Type: 
  Country: None (occurrence: None)
  Receive Date: 20100524
  Receipt Date: 20100414
  Transmission Date: 20101027
  Serious: Yes (Death, Life-Threatening, Hospitalization, Other)
  Sender: FDA-Public Use
  Company Number: US-BAXTER-2010BH001597

PATIENT
  Age: 72 Year
  Sex: Male

DRUGS (20)
  1. HEPARIN SODIUM INJECTION [Suspect]
     Indication: DRUG USE FOR UNKNOWN INDICATION
     Route: 042
     Dates: start: 20071112, end: 20071114
  2. HEPARIN SODIUM INJECTION [Suspect]
     Indication: BRAIN TUMOUR OPERATION
     Route: 042
     Dates: start: 20071112, end: 20071114
  3. HEPARIN SODIUM INJECTION [Suspect]
     Indication: CRANIOTOMY
     Route: 042
     Dates: start: 20071112, end: 20071114
  4. HEPARIN SODIUM INJECTION [Suspect]
     Indication: BRAIN LOBECTOMY
     Route: 042
     Dates: start: 20071112, end: 20071114
  5. HEPARIN SODIUM INJECTION [Suspect]
     Route: 042
     Dates: start: 20071120, end: 20071120
  6. HEPARIN SODIUM INJECTION [Suspect]
     Route: 042
     Dates: start: 20071120, end: 20071120
  7. HEPARIN SODIUM INJECTION [Suspect]
     Route: 042
     Dates: start: 20071120, end: 20071120
  8. HEPARIN SODIUM INJECTION [Suspect]
     Route: 042
     Dates: start: 20071120, end: 20071120
  9. HEPARIN SODIUM INJECTION [Suspect]
     Route: 042
     Dates: start: 20071121, end: 20071121
  10. HEPARIN SODIUM INJECTION [Suspect]
     Route: 042
     Dates: start: 20071121, end: 20071121
  11. HEPARIN SODIUM INJECTION [Suspect]
     Route: 042
     Dates: start: 20071121, end: 20071121
  12. HEPARIN SODIUM INJECTION [Suspect]
     Route: 042
     Dates: start: 20071121, end: 20071121
  13. HEPARIN SODIUM INJECTION [Suspect]
     Route: 042
     Dates: start: 20071128, end: 20071128
  14. HEPARIN SODIUM INJECTION [Suspect]
     Route: 042
     Dates: start: 20071128, end: 20071128
  15. HEPARIN SODIUM INJECTION [Suspect]
     Route: 042
     Dates: start: 20071128, end: 20071128
  16. HEPARIN SODIUM INJECTION [Suspect]
     Route: 042
     Dates: start: 20071128, end: 20071128
  17. FAMOTIDINE [Concomitant]
     Indication: DRUG USE FOR UNKNOWN INDICATION
     Route: 048
  18. OXYCODONE HCL AND ACETAMINOPHEN [Concomitant]
     Indication: DRUG USE FOR UNKNOWN INDICATION
     Route: 048
  19. DEXAMETHASONE [Concomitant]
     Indication: DRUG USE FOR UNKNOWN INDICATION
     Route: 048
     Dates: start: 20071111
  20. PHENYTOIN SODIUM [Concomitant]
     Indication: DRUG USE FOR UNKNOWN INDICATION
     Route: 048
     Dates: start: 20071111

REACTIONS (13)
  - BRAIN HERNIATION [None]
  - CEREBRAL HAEMORRHAGE [None]
  - COAGULOPATHY [None]
  - COMA [None]
  - CONFUSIONAL STATE [None]
  - HAEMATOMA [None]
  - HEADACHE [None]
  - HEPARIN-INDUCED THROMBOCYTOPENIA [None]
  - HYPOTENSION [None]
  - NAUSEA [None]
  - NECROSIS [None]
  - RESPIRATORY FAILURE [None]
  - VOMITING [None]
